FAERS Safety Report 11312261 (Version 1)
Quarter: 2015Q3

REPORT INFORMATION
  Report Type: Spontaneous
  Country: US (occurrence: None)
  Receive Date: 20150723
  Receipt Date: 20150723
  Transmission Date: 20151125
  Serious: Yes (Other)
  Sender: FDA-Public Use
  Company Number: US-002205

PATIENT
  Sex: Female

DRUGS (1)
  1. PARATHYROID HORMONE [Suspect]
     Active Substance: PARATHYROID HORMONE
     Indication: HYPOPARATHYROIDISM
     Route: 058
     Dates: start: 20150625

REACTIONS (4)
  - Disease recurrence [None]
  - Drug dose omission [None]
  - Transient ischaemic attack [None]
  - Expired product administered [None]

NARRATIVE: CASE EVENT DATE: 2015
